FAERS Safety Report 4645586-7 (Version None)
Quarter: 2005Q2

REPORT INFORMATION
  Report Type: 
  Country: None (occurrence: None)
  Receive Date: 20050331
  Receipt Date: 20050118
  Transmission Date: 20051028
  Serious: Yes (Hospitalization)
  Sender: FDA-Public Use
  Company Number: 05P-163-0287493

PATIENT
  Age: 50 Year
  Sex: Male
  Weight: 136.0791 kg

DRUGS (9)
  1. HUMIRA [Suspect]
     Indication: RHEUMATOID ARTHRITIS
     Dosage: 40 MG, 1 IN 2 WK, SUBCUTANEOUS
     Route: 058
     Dates: start: 20041001, end: 20050101
  2. BACLOFEN [Concomitant]
  3. FUROSEMIDE [Concomitant]
  4. METOPROLOL SUCCINATE [Concomitant]
  5. METFORMIN HCL [Concomitant]
  6. RANITIDINE HYDROCHLORIDE [Concomitant]
  7. SALSALATE [Concomitant]
  8. K POV [Concomitant]
  9. GLIBENCLMIDE [Concomitant]

REACTIONS (1)
  - PYREXIA [None]
